FAERS Safety Report 18765120 (Version 1)
Quarter: 2021Q1

REPORT INFORMATION
  Report Type: Spontaneous
  Country: US (occurrence: US)
  Receive Date: 20210120
  Receipt Date: 20210120
  Transmission Date: 20210419
  Serious: Yes (Hospitalization)
  Sender: FDA-Public Use
  Company Number: US-TEVA-2021-US-1869898

PATIENT
  Age: 32 Year
  Sex: Male

DRUGS (7)
  1. MESNA. [Concomitant]
     Active Substance: MESNA
     Indication: CHEMOTHERAPY SIDE EFFECT PROPHYLAXIS
     Dosage: FOUR CYCLES WERE PLANNED; EACH CYCLE COMPRISED OF FIVE DAYS OF CISPLATIN, ETOPOSIDE, IFOSFAMIDE
     Route: 065
  2. CISPLATIN. [Suspect]
     Active Substance: CISPLATIN
     Indication: TESTICULAR CANCER METASTATIC
     Dosage: FOUR CYCLES WERE PLANNED; EACH CYCLE COMPRISED OF FIVE DAYS OF CISPLATIN, ETOPOSIDE, IFOSFAMIDE
     Route: 065
  3. ETOPOSIDE. [Concomitant]
     Active Substance: ETOPOSIDE
     Indication: TESTICULAR CANCER METASTATIC
     Dosage: FOUR CYCLES WERE PLANNED; EACH CYCLE COMPRISED OF FIVE DAYS OF CISPLATIN, ETOPOSIDE, IFOSFAMIDE
     Route: 065
  4. ETOPOSIDE. [Concomitant]
     Active Substance: ETOPOSIDE
     Indication: GERM CELL CANCER METASTATIC
  5. IFOSFAMIDE. [Suspect]
     Active Substance: IFOSFAMIDE
     Indication: TESTICULAR CANCER METASTATIC
     Dosage: FOUR CYCLES WERE PLANNED; EACH CYCLE COMPRISED OF FIVE DAYS OF CISPLATIN, ETOPOSIDE, IFOSFAMIDE
     Route: 065
  6. IFOSFAMIDE. [Suspect]
     Active Substance: IFOSFAMIDE
     Indication: GERM CELL CANCER METASTATIC
  7. CISPLATIN. [Suspect]
     Active Substance: CISPLATIN
     Indication: GERM CELL CANCER METASTATIC

REACTIONS (1)
  - Fanconi syndrome [Recovered/Resolved]
